FAERS Safety Report 8985995 (Version 1)
Quarter: 2012Q4

REPORT INFORMATION
  Report Type: 
  Country: US (occurrence: US)
  Receive Date: 20121226
  Receipt Date: 20121226
  Transmission Date: 20130627
  Serious: Yes (Other)
  Sender: FDA-Public Use
  Company Number: US-ASTELLAS-2012US012536

PATIENT
  Sex: Female

DRUGS (1)
  1. VESICARE [Suspect]
     Indication: HYPERTONIC BLADDER
     Dosage: UNK
     Route: 065

REACTIONS (2)
  - Gait disturbance [Unknown]
  - Oedema peripheral [Unknown]
